FAERS Safety Report 25282165 (Version 2)
Quarter: 2025Q3

REPORT INFORMATION
  Report Type: Spontaneous
  Country: US (occurrence: US)
  Receive Date: 20250508
  Receipt Date: 20250725
  Transmission Date: 20251021
  Serious: No
  Sender: Karo Pharma
  Company Number: US-Karo Pharma-2176344

PATIENT
  Age: 32 Year
  Sex: Male

DRUGS (5)
  1. TERBINAFINE [Suspect]
     Active Substance: TERBINAFINE
     Indication: Psoriasis
  2. METHOTREXATE [Suspect]
     Active Substance: METHOTREXATE
  3. PHENTERMINE [Suspect]
     Active Substance: PHENTERMINE
  4. PREDNISONE [Suspect]
     Active Substance: PREDNISONE
  5. TACROLIMUS [Suspect]
     Active Substance: TACROLIMUS

REACTIONS (4)
  - Psoriasis [Unknown]
  - Drug ineffective [Unknown]
  - Product use in unapproved indication [Unknown]
  - Depression [Unknown]
